FAERS Safety Report 13139117 (Version 1)
Quarter: 2017Q1

REPORT INFORMATION
  Report Type: Spontaneous
  Country: SE (occurrence: SE)
  Receive Date: 20170123
  Receipt Date: 20170123
  Transmission Date: 20170428
  Serious: Yes (Death)
  Sender: FDA-Public Use
  Company Number: SE-TEVA-728932ISR

PATIENT
  Age: 83 Year
  Sex: Female

DRUGS (1)
  1. RISPERDAL [Suspect]
     Active Substance: RISPERIDONE
     Route: 065
     Dates: end: 20160114

REACTIONS (10)
  - Eye disorder [Fatal]
  - Gait disturbance [Fatal]
  - Decreased appetite [Fatal]
  - Onychomycosis [Fatal]
  - Skin disorder [Fatal]
  - Disease progression [Fatal]
  - Asthenia [Fatal]
  - Drooling [Fatal]
  - Apathy [Fatal]
  - Dyspnoea [Fatal]

NARRATIVE: CASE EVENT DATE: 20150506
